FAERS Safety Report 5391995-0 (Version None)
Quarter: 2007Q3

REPORT INFORMATION
  Report Type: 
  Country: None (occurrence: None)
  Receive Date: 20070720
  Receipt Date: 20070711
  Transmission Date: 20080115
  Serious: Yes (Other)
  Sender: FDA-Public Use
  Company Number: JP-SP-2007-02527

PATIENT
  Age: 68 Year
  Sex: Male

DRUGS (5)
  1. IMMUCYST [Suspect]
     Indication: BLADDER CANCER
     Route: 043
     Dates: start: 20060201, end: 20060308
  2. IMMUCYST [Suspect]
     Route: 043
     Dates: start: 20060201, end: 20060308
  3. IMMUCYST [Suspect]
     Route: 043
     Dates: start: 20060201, end: 20060308
  4. ISONIAZID [Suspect]
     Indication: PYREXIA
     Route: 048
     Dates: start: 20060215, end: 20060308
  5. RIFAMPICIN [Suspect]
     Indication: PYREXIA
     Route: 048
     Dates: start: 20060215, end: 20060308

REACTIONS (3)
  - DYSURIA [None]
  - PYREXIA [None]
  - STOMATITIS [None]
